FAERS Safety Report 6867297-X (Version None)
Quarter: 2010Q3

REPORT INFORMATION
  Report Type: 
  Country: None (occurrence: None)
  Receive Date: 20100722
  Receipt Date: 20100715
  Transmission Date: 20110219
  Serious: Yes (Death)
  Sender: FDA-Public Use
  Company Number: US-GILEAD-2010-0030443

PATIENT
  Sex: Female
  Weight: 83.536 kg

DRUGS (22)
  1. LETAIRIS [Suspect]
     Indication: PULMONARY ARTERIAL HYPERTENSION
     Route: 048
     Dates: start: 20100129
  2. ASPIRIN [Concomitant]
  3. BUMEX [Concomitant]
  4. HYDROCHLOROTHIAZIDE [Concomitant]
  5. SPIRONOLACTONE [Concomitant]
  6. DIOVAN [Concomitant]
  7. DIGOXIN [Concomitant]
  8. LESCOL XL [Concomitant]
  9. JANUMET [Concomitant]
  10. MEGACE [Concomitant]
  11. HYDROXYCHLOROQUINE [Concomitant]
  12. VICODIN [Concomitant]
  13. GABAPENTIN [Concomitant]
  14. ALVESCO [Concomitant]
  15. NASACORT [Concomitant]
  16. SEREVENT [Concomitant]
  17. METOCLOPRAMIDE [Concomitant]
  18. NEXIUM [Concomitant]
  19. SPIRIVA [Concomitant]
  20. PREDNISONE [Concomitant]
  21. POTASSIUM [Concomitant]
  22. CALCIUM +D [Concomitant]

REACTIONS (1)
  - DEATH [None]
